FAERS Safety Report 5475062-3 (Version None)
Quarter: 2007Q4

REPORT INFORMATION
  Report Type: 
  Country: None (occurrence: None)
  Receive Date: 20071002
  Receipt Date: 20070920
  Transmission Date: 20080405
  Serious: Yes (Hospitalization)
  Sender: FDA-Public Use
  Company Number: GB-PFIZER INC-2007078944

PATIENT
  Age: 20 Year
  Sex: Female

DRUGS (4)
  1. AZITHROMYCIN [Suspect]
     Route: 042
  2. CEFTAZIDIME [Suspect]
  3. COLOMYCIN [Suspect]
     Route: 042
     Dates: start: 20001201, end: 20010101
  4. TOBRAMYCIN [Suspect]
     Route: 042
     Dates: start: 20001201, end: 20010101

REACTIONS (7)
  - ARTHRALGIA [None]
  - BLOOD PRESSURE INCREASED [None]
  - DIZZINESS [None]
  - DRUG INTERACTION [None]
  - HEADACHE [None]
  - NAUSEA [None]
  - RENAL FAILURE ACUTE [None]
